FAERS Safety Report 20426640 (Version 2)
Quarter: 2022Q1

REPORT INFORMATION
  Report Type: Report from Study
  Country: AR (occurrence: AR)
  Receive Date: 20220204
  Receipt Date: 20220323
  Transmission Date: 20220423
  Serious: Yes (Hospitalization)
  Sender: FDA-Public Use
  Company Number: AR-ABBVIE-22K-007-4262080-00

PATIENT
  Age: 64 Year
  Sex: Female

DRUGS (1)
  1. HUMIRA [Suspect]
     Active Substance: ADALIMUMAB
     Indication: Rheumatoid arthritis
     Route: 058
     Dates: start: 20190527

REACTIONS (6)
  - Gastrointestinal disorder [Recovering/Resolving]
  - COVID-19 [Recovered/Resolved]
  - Asthenia [Unknown]
  - Lung disorder [Unknown]
  - Abdominal pain upper [Unknown]
  - Pneumonia [Unknown]

NARRATIVE: CASE EVENT DATE: 20220105
